FAERS Safety Report 14940254 (Version 1)
Quarter: 2018Q2

REPORT INFORMATION
  Report Type: Report from Study
  Country: ES (occurrence: ES)
  Receive Date: 20180525
  Receipt Date: 20180525
  Transmission Date: 20180711
  Serious: No
  Sender: FDA-Public Use
  Company Number: ES-SA-2017SA098957

PATIENT
  Age: 37 Year
  Sex: Male

DRUGS (2)
  1. ALEMTUZUMAB [Suspect]
     Active Substance: ALEMTUZUMAB
     Indication: MULTIPLE SCLEROSIS RELAPSE
     Dosage: 12 MG,QD
     Route: 041
     Dates: start: 20170424, end: 20170428
  2. TECFIDERA [Concomitant]
     Active Substance: DIMETHYL FUMARATE
     Dosage: UNK
     Dates: start: 20150220, end: 20170421

REACTIONS (10)
  - Fatigue [Recovering/Resolving]
  - Rash [Recovered/Resolved]
  - Depression [Recovering/Resolving]
  - Herpes zoster [Recovering/Resolving]
  - Insomnia [Recovering/Resolving]
  - Urinary tract infection [Recovering/Resolving]
  - Lymphopenia [Recovered/Resolved]
  - Haematoma [Recovered/Resolved]
  - Pyrexia [Recovered/Resolved]
  - Hypotension [Recovered/Resolved]

NARRATIVE: CASE EVENT DATE: 20170424
